FAERS Safety Report 13928762 (Version 2)
Quarter: 2017Q3

REPORT INFORMATION
  Report Type: Spontaneous
  Country: US (occurrence: US)
  Receive Date: 20170901
  Receipt Date: 20170906
  Transmission Date: 20171127
  Serious: No
  Sender: FDA-Public Use
  Company Number: US-BAYER-2017-167458

PATIENT
  Sex: Female

DRUGS (1)
  1. MIRALAX [Suspect]
     Active Substance: POLYETHYLENE GLYCOL 3350
     Indication: PREOPERATIVE CARE
     Dosage: 16 DF, UNK
     Route: 065

REACTIONS (2)
  - Product use in unapproved indication [Unknown]
  - Off label use [Unknown]
